FAERS Safety Report 9340470 (Version 1)
Quarter: 2013Q2

REPORT INFORMATION
  Report Type: Spontaneous
  Country: US (occurrence: US)
  Receive Date: 20130610
  Receipt Date: 20130610
  Transmission Date: 20140414
  Serious: Yes (Other)
  Sender: FDA-Public Use
  Company Number: US-BAYER-2013-068299

PATIENT
  Age: 41 Year
  Sex: Female

DRUGS (7)
  1. BEYAZ [Suspect]
     Dosage: UNK
  2. SAFYRAL [Suspect]
  3. ALLEGRA-D [Concomitant]
     Dosage: UNK
     Route: 048
     Dates: start: 20110923
  4. AUGMENTIN [Concomitant]
     Dosage: 875 MG, BID
     Route: 048
     Dates: start: 20110923
  5. DIFLUCAN [Concomitant]
     Dosage: 150 MG, PRN
     Route: 048
     Dates: start: 20110923
  6. LORTAB [Concomitant]
     Dosage: UNK
     Route: 048
     Dates: start: 20110923
  7. YAZ [Suspect]

REACTIONS (4)
  - Deep vein thrombosis [None]
  - Pulmonary embolism [None]
  - Cholecystitis acute [None]
  - Deep vein thrombosis [None]
